FAERS Safety Report 6973294-6 (Version None)
Quarter: 2010Q3

REPORT INFORMATION
  Report Type: 
  Country: None (occurrence: None)
  Receive Date: 20100909
  Receipt Date: 20100903
  Transmission Date: 20110219
  Serious: Yes (Hospitalization, Other)
  Sender: FDA-Public Use
  Company Number: PHHO2010US13535

PATIENT
  Sex: Male
  Weight: 102 kg

DRUGS (13)
  1. BLINDED ALISKIREN ALI+TAB [Suspect]
     Indication: CORONARY ARTERY DISEASE
     Dosage: CODE NOT BROKEN
     Dates: start: 20100709, end: 20100827
  2. BLINDED NO TREATMENT RECEIVED NOMED [Suspect]
     Indication: CORONARY ARTERY DISEASE
     Dosage: CODE NOT BROKEN
     Dates: start: 20100709, end: 20100827
  3. BLINDED PLACEBO COMP-PLA+ [Suspect]
     Indication: CORONARY ARTERY DISEASE
     Dosage: CODE NOT BROKEN
     Dates: start: 20100709, end: 20100827
  4. ALISKIREN [Suspect]
     Indication: CORONARY ARTERY DISEASE
     Dosage: NO TREATMENT
  5. METOPROLOL TARTRATE [Concomitant]
  6. HYDROCHLOROTHIAZIDE [Concomitant]
  7. CILOSTAZOL [Concomitant]
  8. ASPIRIN [Concomitant]
  9. TERAZOSIN HCL [Concomitant]
  10. VENLAFAXINE [Concomitant]
  11. BUPROPION HCL [Concomitant]
  12. SIMVASTATIN [Concomitant]
  13. ISOSORBIDE MONONITRATE [Concomitant]

REACTIONS (2)
  - CHEST PAIN [None]
  - PRURITUS [None]
